FAERS Safety Report 23360168 (Version 2)
Quarter: 2024Q2

REPORT INFORMATION
  Report Type: Report from Study
  Country: DE (occurrence: DE)
  Receive Date: 20240103
  Receipt Date: 20240414
  Transmission Date: 20240716
  Serious: Yes (Other)
  Sender: FDA-Public Use
  Company Number: DE-EMA-DD-20230906-7180171-095713

PATIENT
  Age: 28 Year
  Sex: Male

DRUGS (2)
  1. FILGRASTIM [Suspect]
     Active Substance: FILGRASTIM
     Indication: Stem cell donor
     Dosage: 3120 UG, IN TOTAL
     Route: 058
     Dates: start: 20120719
  2. FILGRASTIM [Suspect]
     Active Substance: FILGRASTIM
     Dosage: 3120 UG, IN TOTAL
     Route: 058
     Dates: start: 20120723

REACTIONS (5)
  - Hypothyroidism [Recovered/Resolved with Sequelae]
  - Thyroid mass [Unknown]
  - Lowry-Wood syndrome [Not Recovered/Not Resolved]
  - Bone pain [Recovered/Resolved]
  - Headache [Recovered/Resolved]

NARRATIVE: CASE EVENT DATE: 20120720
